FAERS Safety Report 11937930 (Version 1)
Quarter: 2016Q1

REPORT INFORMATION
  Report Type: Spontaneous
  Country: IT (occurrence: IT)
  Receive Date: 20160122
  Receipt Date: 20160122
  Transmission Date: 20160526
  Serious: Yes (Other)
  Sender: FDA-Public Use
  Company Number: IT-SHIRE-IT201600621

PATIENT
  Sex: Female

DRUGS (1)
  1. VPRIV [Suspect]
     Active Substance: VELAGLUCERASE ALFA
     Indication: GAUCHER^S DISEASE TYPE III
     Dosage: UNK, UNKNOWN
     Route: 041

REACTIONS (4)
  - Mental disorder [Unknown]
  - Anaphylactic shock [Unknown]
  - Product use issue [Unknown]
  - Bone infarction [Unknown]
